FAERS Safety Report 4404060-3 (Version None)
Quarter: 2004Q2

REPORT INFORMATION
  Report Type: 
  Country: None (occurrence: None)
  Receive Date: 20040618
  Receipt Date: 20040427
  Transmission Date: 20050107
  Serious: No
  Sender: FDA-Public Use
  Company Number: US-JNJFOC-20040204201

PATIENT
  Age: 19 Year
  Sex: Female
  Weight: 65.7716 kg

DRUGS (1)
  1. ORTHO EVRA [Suspect]
     Indication: CONTRACEPTION
     Dosage: 1 DOSE(S) 3 IN 4 WEEKS TRANSDERMAL
     Route: 062

REACTIONS (7)
  - ABDOMINAL PAIN UPPER [None]
  - DIZZINESS [None]
  - MENORRHAGIA [None]
  - OLIGOMENORRHOEA [None]
  - OTITIS EXTERNA [None]
  - VAGINAL SWELLING [None]
  - VOMITING [None]
